FAERS Safety Report 8132802-2 (Version None)
Quarter: 2012Q1

REPORT INFORMATION
  Report Type: 
  Country: None (occurrence: None)
  Receive Date: 20120213
  Receipt Date: 20120209
  Transmission Date: 20120608
  Serious: Yes (Hospitalization, Other)
  Sender: FDA-Public Use
  Company Number: US-MERCK-1112USA01773

PATIENT
  Age: 67 Year
  Sex: Female

DRUGS (3)
  1. FOSAMAX [Suspect]
     Route: 048
     Dates: start: 20080101, end: 20100401
  2. FOSAMAX [Suspect]
     Route: 048
     Dates: start: 20080101, end: 20080201
  3. FOSAMAX PLUS D [Suspect]
     Indication: OSTEOPOROSIS
     Route: 048
     Dates: start: 20000101, end: 20100401

REACTIONS (6)
  - LOW TURNOVER OSTEOPATHY [None]
  - ROAD TRAFFIC ACCIDENT [None]
  - FEMUR FRACTURE [None]
  - BREAST CANCER [None]
  - ADVERSE EVENT [None]
  - WRIST FRACTURE [None]
